FAERS Safety Report 18304247 (Version 2)
Quarter: 2020Q3

REPORT INFORMATION
  Report Type: Spontaneous
  Country: IL (occurrence: IL)
  Receive Date: 20200923
  Receipt Date: 20200930
  Transmission Date: 20201103
  Serious: Yes (Other)
  Sender: FDA-Public Use
  Company Number: IL-SYNTHON BV-IN51PV20_55438

PATIENT
  Age: 64 Year
  Sex: Male

DRUGS (3)
  1. PROMNIX [Suspect]
     Active Substance: TAMSULOSIN HYDROCHLORIDE
     Indication: BENIGN PROSTATIC HYPERPLASIA
     Dosage: DOSE PRESCRIPTION WAS 1 TABLET PER DAY, BUT TOOK ONE TABLET EVERY THREE DAYS (BECAUSE OF RHINITIS)
     Route: 065
  2. PROMNIX [Suspect]
     Active Substance: TAMSULOSIN HYDROCHLORIDE
     Indication: DYSURIA
  3. STATOR [ROSUVASTATIN CALCIUM] [Concomitant]
     Dosage: ONE TABLET A DAY
     Route: 065

REACTIONS (2)
  - Rhinitis [Not Recovered/Not Resolved]
  - Chorioretinopathy [Unknown]
